FAERS Safety Report 9177811 (Version 2)
Quarter: 2012Q4

REPORT INFORMATION
  Report Type: 
  Country: US (occurrence: US)
  Receive Date: 20121011
  Receipt Date: 20121016
  Transmission Date: 20130627
  Serious: Yes (Other)
  Sender: FDA-Public Use
  Company Number: US-RB-045132-12

PATIENT
  Sex: Male

DRUGS (2)
  1. MUCINEX DM UNKNOWN SIZE [Suspect]
     Indication: DRUG ABUSE
     Dosage: took 7 pills
     Route: 048
  2. MUCINEX DM MAXIMUM STRENGTH [Suspect]
     Indication: DRUG ABUSE
     Dosage: took 7 pills
     Route: 048

REACTIONS (2)
  - Agitation [Unknown]
  - Drug abuse [Unknown]
